FAERS Safety Report 10733414 (Version 2)
Quarter: 2015Q4

REPORT INFORMATION
  Report Type: Report from Study
  Country: MX (occurrence: MX)
  Receive Date: 20150123
  Receipt Date: 20151221
  Transmission Date: 20160304
  Serious: Yes (Other)
  Sender: FDA-Public Use
  Company Number: PHHY2014MX104418

PATIENT
  Age: 53 Year
  Sex: Female

DRUGS (10)
  1. COMBIVENT [Concomitant]
     Active Substance: ALBUTEROL SULFATE\IPRATROPIUM BROMIDE
     Indication: ASTHMA
     Dosage: 1 OT, QD
     Route: 065
     Dates: start: 201402
  2. ANAPSIQUE [Concomitant]
     Indication: SLEEP DISORDER
     Dosage: 1 OT, QD
     Route: 048
  3. TRILEPTAL [Suspect]
     Active Substance: OXCARBAZEPINE
     Dosage: 1 DF (300 MG), QD (DAILY AT NIGHTS)
     Route: 048
  4. MIFLONIDE [Concomitant]
     Active Substance: BUDESONIDE
     Indication: ASTHMA
     Dosage: UNK
     Route: 065
  5. LEXOTAN [Concomitant]
     Active Substance: BROMAZEPAM
     Indication: SEIZURE
     Dosage: 1 OT, QD
     Route: 048
  6. SALBUTAMOL [Concomitant]
     Active Substance: ALBUTEROL
     Indication: ASTHMA
     Dosage: UNK
     Route: 065
  7. FORADIL [Concomitant]
     Active Substance: FORMOTEROL FUMARATE
     Indication: ASTHMA
     Dosage: UNK
     Route: 065
  8. MORPHINE [Concomitant]
     Active Substance: MORPHINE
     Indication: BONE PAIN
     Dosage: 1 OT, QD
     Route: 048
  9. TRILEPTAL [Suspect]
     Active Substance: OXCARBAZEPINE
     Indication: EPILEPSY
     Dosage: 1 DF (300 MG), QD
     Route: 048
     Dates: start: 201204
  10. GABATIN//GABAPENTIN [Concomitant]
     Indication: PRODUCT USED FOR UNKNOWN INDICATION
     Dosage: UNK
     Route: 065

REACTIONS (26)
  - Dysphagia [Recovered/Resolved]
  - Mental disorder [Unknown]
  - Asthenia [Recovering/Resolving]
  - Hiatus hernia [Recovered/Resolved]
  - Cholelithiasis [Recovered/Resolved]
  - Lip swelling [Recovering/Resolving]
  - Inflammation [Recovered/Resolved]
  - Visual impairment [Recovering/Resolving]
  - Headache [Recovering/Resolving]
  - Injury [Recovering/Resolving]
  - Back pain [Recovering/Resolving]
  - Neck pain [Not Recovered/Not Resolved]
  - Swelling [Unknown]
  - Depressed mood [Not Recovered/Not Resolved]
  - Dyspnoea [Unknown]
  - Oesophageal injury [Unknown]
  - Hypoaesthesia oral [Recovering/Resolving]
  - Dizziness [Recovering/Resolving]
  - Infection [Not Recovered/Not Resolved]
  - Depression [Not Recovered/Not Resolved]
  - Fatigue [Recovering/Resolving]
  - Coma [Recovering/Resolving]
  - Post procedural complication [Unknown]
  - Feeling abnormal [Recovering/Resolving]
  - Gastrooesophageal reflux disease [Recovered/Resolved]
  - Asthma [Unknown]

NARRATIVE: CASE EVENT DATE: 201407
